FAERS Safety Report 14646050 (Version 1)
Quarter: 2018Q1

REPORT INFORMATION
  Report Type: Report from Study
  Country: US (occurrence: US)
  Receive Date: 20180316
  Receipt Date: 20180316
  Transmission Date: 20180509
  Serious: No
  Sender: FDA-Public Use
  Company Number: PHEH2018US010214

PATIENT
  Sex: Female

DRUGS (2)
  1. ENTRESTO [Suspect]
     Active Substance: SACUBITRIL\VALSARTAN
     Indication: PRODUCT USED FOR UNKNOWN INDICATION
     Dosage: 1 DF, 200MG, (SACUBITRIL 97 MG/ VALSARTAN 103 MG),  BID
     Route: 048
  2. ENTRESTO [Suspect]
     Active Substance: SACUBITRIL\VALSARTAN
     Dosage: 50MG, (SACUBITRIL 49 MG/ VALSARTAN 51 MG)
     Route: 065

REACTIONS (3)
  - Pruritus [Unknown]
  - Muscle tightness [Unknown]
  - Swelling [Unknown]
